FAERS Safety Report 18866950 (Version 1)
Quarter: 2021Q1

REPORT INFORMATION
  Report Type: Spontaneous
  Country: CH (occurrence: CH)
  Receive Date: 20210209
  Receipt Date: 20210209
  Transmission Date: 20210420
  Serious: Yes (Death, Other)
  Sender: FDA-Public Use
  Company Number: CH-TOLMAR, INC.-21CH025332

PATIENT
  Age: 64 Year
  Sex: Male

DRUGS (3)
  1. ACYCLOVIR. [Suspect]
     Active Substance: ACYCLOVIR
     Indication: HERPES SIMPLEX
     Dosage: 10 MG/KG BODY WEIGHT WAS STARTED INTRAVENOUSLY UPON RECEIPT OF CYTOLOGY 3 DAYS AFTER ADMISSION
     Route: 042
  2. ACYCLOVIR. [Suspect]
     Active Substance: ACYCLOVIR
     Indication: PNEUMONIA VIRAL
     Dosage: 5 MILLIGRAM/KILOGRAM
     Route: 042
  3. ACYCLOVIR. [Suspect]
     Active Substance: ACYCLOVIR
     Dosage: INCREASED AGAIN TO 10 MG/KG BODY WEIGHT ON THE FOLLOWING DAY
     Route: 042

REACTIONS (2)
  - Death [Fatal]
  - Metastases to central nervous system [Unknown]
